FAERS Safety Report 21880822 (Version 1)
Quarter: 2023Q1

REPORT INFORMATION
  Report Type: Spontaneous
  Country: FI (occurrence: None)
  Receive Date: 20230118
  Receipt Date: 20230118
  Transmission Date: 20230418
  Serious: Yes (Other)
  Sender: FDA-Public Use
  Company Number: FI-Merck Healthcare KGaA-9377788

PATIENT
  Age: 50 Year
  Sex: Male

DRUGS (1)
  1. BAVENCIO [Suspect]
     Active Substance: AVELUMAB
     Indication: Product used for unknown indication

REACTIONS (3)
  - Hypothalamo-pituitary disorder [Unknown]
  - Blood thyroid stimulating hormone increased [Unknown]
  - Blood testosterone decreased [Unknown]
